FAERS Safety Report 11564007 (Version 1)
Quarter: 2015Q3

REPORT INFORMATION
  Report Type: Spontaneous
  Country: US (occurrence: US)
  Receive Date: 20150916
  Receipt Date: 20150916
  Transmission Date: 20151125
  Serious: No
  Sender: FDA-Public Use
  Company Number: US-ELI_LILLY_AND_COMPANY-US200902006751

PATIENT
  Sex: Female

DRUGS (1)
  1. FORTEO [Suspect]
     Active Substance: TERIPARATIDE

REACTIONS (7)
  - Foot fracture [Unknown]
  - Anxiety [Not Recovered/Not Resolved]
  - Upper limb fracture [Unknown]
  - Ankle fracture [Unknown]
  - Tooth fracture [Not Recovered/Not Resolved]
  - Stress [Not Recovered/Not Resolved]
  - Rib fracture [Unknown]
